FAERS Safety Report 25634580 (Version 1)
Quarter: 2025Q3

REPORT INFORMATION
  Report Type: Spontaneous
  Country: EU (occurrence: EU)
  Receive Date: 20250801
  Receipt Date: 20250801
  Transmission Date: 20251020
  Serious: No
  Sender: IPSEN BIOPHARMACEUTICALS, INC.
  Company Number: EU-IPSEN Group, Research and Development-2025-18195

PATIENT
  Age: 55 Year
  Sex: Male

DRUGS (6)
  1. ODEVIXIBAT [Suspect]
     Active Substance: ODEVIXIBAT
     Indication: Cholestasis
  2. ODEVIXIBAT [Suspect]
     Active Substance: ODEVIXIBAT
     Indication: Off label use
  3. CHOLESTYRAMINE [Concomitant]
     Active Substance: CHOLESTYRAMINE
  4. VITAMINS NOS [Concomitant]
     Active Substance: VITAMINS
  5. RIFAMPIN [Concomitant]
     Active Substance: RIFAMPIN
  6. COVID-19 VACCINE [Concomitant]

REACTIONS (6)
  - Pruritus [Recovered/Resolved]
  - Bile acids increased [Recovered/Resolved]
  - Sleep disorder [Unknown]
  - Fatigue [Recovered/Resolved]
  - Off label use [Unknown]
  - Off label use [Unknown]
